FAERS Safety Report 9530749 (Version 1)
Quarter: 2013Q2

REPORT INFORMATION
  Report Type: Spontaneous
  Country: US (occurrence: None)
  Receive Date: 20130418
  Receipt Date: 20130418
  Transmission Date: 20140414
  Serious: Yes (Other)
  Sender: FDA-Public Use
  Company Number: 090USA02264

PATIENT
  Sex: Male
  Weight: 26.6 kg

DRUGS (3)
  1. SINGULAIR [Suspect]
     Indication: RHINITIS ALLERGIC
     Dosage: 4 MG, QD, ORAL)
     Route: 048
  2. LORATIDINE [Concomitant]
  3. FLUTICASONE PROPINATE  (FLUTICASONE PROPIONATE) [Concomitant]

REACTIONS (1)
  - Aggression [None]
